FAERS Safety Report 5149148-7 (Version None)
Quarter: 2006Q4

REPORT INFORMATION
  Report Type: 
  Country: None (occurrence: None)
  Receive Date: 20061113
  Receipt Date: 20060814
  Transmission Date: 20070319
  Serious: No
  Sender: FDA-Public Use
  Company Number: US-GLAXOSMITHKLINE-A0616530A

PATIENT
  Sex: Female

DRUGS (4)
  1. COREG [Suspect]
     Indication: PAIN
     Dosage: 12.5MG TWICE PER DAY
     Route: 048
  2. HYZAAR [Concomitant]
  3. DIGOXIN [Concomitant]
  4. ASPIRIN [Concomitant]

REACTIONS (1)
  - HYPOAESTHESIA [None]
